FAERS Safety Report 20891213 (Version 1)
Quarter: 2022Q2

REPORT INFORMATION
  Report Type: Report from Study
  Country: US (occurrence: US)
  Receive Date: 20220530
  Receipt Date: 20220530
  Transmission Date: 20220720
  Serious: Yes (Other)
  Sender: FDA-Public Use
  Company Number: US-JNJFOC-20220550114

PATIENT
  Age: 7 Decade
  Sex: Female

DRUGS (5)
  1. SPRAVATO [Suspect]
     Active Substance: ESKETAMINE
     Indication: Depression
     Dosage: 56 MG, 7 TOTAL DOSES
     Dates: start: 20220126, end: 20220214
  2. SPRAVATO [Suspect]
     Active Substance: ESKETAMINE
     Dosage: 84 MG, 18 TOTAL DOSES
     Dates: start: 20220216, end: 20220427
  3. SPRAVATO [Suspect]
     Active Substance: ESKETAMINE
     Dosage: 14MG, 1 TOTAL DOSES
     Dates: start: 20220502, end: 20220502
  4. SPRAVATO [Suspect]
     Active Substance: ESKETAMINE
     Dosage: 84 MG, 2 TOTAL DOSES
     Dates: start: 20220504, end: 20220509
  5. SPRAVATO [Suspect]
     Active Substance: ESKETAMINE
     Dosage: 84 MG, 1 TOTAL DOSES
     Dates: start: 20220512, end: 20220512

REACTIONS (3)
  - Depressive symptom [Not Recovered/Not Resolved]
  - Sedation [Recovered/Resolved]
  - Dissociation [Recovered/Resolved]

NARRATIVE: CASE EVENT DATE: 20220101
